FAERS Safety Report 21003144 (Version 1)
Quarter: 2022Q2

REPORT INFORMATION
  Report Type: Spontaneous
  Country: US (occurrence: None)
  Receive Date: 20220623
  Receipt Date: 20220623
  Transmission Date: 20220721
  Serious: No
  Sender: FDA-Public Use
  Company Number: None

PATIENT
  Age: 72 Year
  Sex: Female

DRUGS (1)
  1. KESIMPTA [Suspect]
     Active Substance: OFATUMUMAB
     Indication: Multiple sclerosis
     Dosage: FREQUENCY : MONTHLY;?
     Route: 030
     Dates: start: 202206, end: 20220623

REACTIONS (6)
  - Device malfunction [None]
  - Device leakage [None]
  - Incorrect dose administered by device [None]
  - Accidental exposure to product [None]
  - Application site burn [None]
  - Needle issue [None]

NARRATIVE: CASE EVENT DATE: 20220623
